FAERS Safety Report 7179174-8 (Version None)
Quarter: 2010Q4

REPORT INFORMATION
  Report Type: 
  Country: None (occurrence: None)
  Receive Date: 20101221
  Receipt Date: 20101213
  Transmission Date: 20110411
  Serious: Yes (Death)
  Sender: FDA-Public Use
  Company Number: AU-JNJFOC-20100304252

PATIENT
  Age: 26 Year
  Sex: Male

DRUGS (4)
  1. TRAMADOL HYDROCHLORIDE [Suspect]
     Indication: ILL-DEFINED DISORDER
     Route: 065
  2. FLUOXETINE [Interacting]
     Indication: ILL-DEFINED DISORDER
     Route: 065
  3. OXYCODONE [Concomitant]
  4. DIAZEPAM [Concomitant]

REACTIONS (3)
  - ACCIDENTAL OVERDOSE [None]
  - DRUG INTERACTION [None]
  - DRUG TOXICITY [None]
